FAERS Safety Report 24069157 (Version 1)
Quarter: 2024Q3

REPORT INFORMATION
  Report Type: Report from Study
  Country: DK (occurrence: DK)
  Receive Date: 20240710
  Receipt Date: 20240710
  Transmission Date: 20241016
  Serious: No
  Sender: ROCHE
  Company Number: DK-ROCHE-3139629

PATIENT
  Age: 55 Year
  Sex: Female

DRUGS (1)
  1. ALECTINIB [Suspect]
     Active Substance: ALECTINIB
     Indication: Non-small cell lung cancer
     Dosage: ALECTINIB REDUCED TO 450X2 DAILY WITH COMPLETE REMISSION OF SYMPTOMS AT NEXT OUTPATIENT VISIT JUNE 2
     Route: 065
     Dates: start: 20201014

REACTIONS (1)
  - Myalgia [Recovered/Resolved]

NARRATIVE: CASE EVENT DATE: 20220301
